APPROVED DRUG PRODUCT: FLUTICASONE PROPIONATE
Active Ingredient: FLUTICASONE PROPIONATE
Strength: 0.05%
Dosage Form/Route: CREAM;TOPICAL
Application: A076633 | Product #001 | TE Code: AB
Applicant: ENCUBE ETHICALS PRIVATE LTD
Approved: May 14, 2004 | RLD: No | RS: No | Type: RX